FAERS Safety Report 22797655 (Version 2)
Quarter: 2023Q4

REPORT INFORMATION
  Report Type: Report from Study
  Country: US (occurrence: US)
  Receive Date: 20230808
  Receipt Date: 20231025
  Transmission Date: 20240110
  Serious: Yes (Other)
  Sender: FDA-Public Use
  Company Number: US-JNJFOC-20230808054

PATIENT
  Age: 61 Year
  Sex: Male
  Weight: 62.1 kg

DRUGS (1)
  1. CILTACABTAGENE AUTOLEUCEL [Suspect]
     Active Substance: CILTACABTAGENE AUTOLEUCEL
     Indication: Plasma cell myeloma
     Route: 065
     Dates: start: 20221215

REACTIONS (11)
  - Acute kidney injury [Unknown]
  - Aspartate aminotransferase increased [Unknown]
  - Dysmetria [Unknown]
  - Pyrexia [Unknown]
  - Fatigue [Unknown]
  - Malaise [Unknown]
  - Tachycardia [Unknown]
  - Alanine aminotransferase abnormal [Unknown]
  - Hypoalbuminaemia [Unknown]
  - Tremor [Unknown]
  - Diarrhoea [Unknown]

NARRATIVE: CASE EVENT DATE: 20221220
